FAERS Safety Report 5142379-1 (Version None)
Quarter: 2006Q4

REPORT INFORMATION
  Report Type: 
  Country: None (occurrence: None)
  Receive Date: 20061102
  Receipt Date: 20061025
  Transmission Date: 20070319
  Serious: Yes (Other)
  Sender: FDA-Public Use
  Company Number: GB-GLAXOSMITHKLINE-B0444849A

PATIENT
  Sex: Female

DRUGS (2)
  1. COMBIVIR [Suspect]
     Indication: ACCIDENTAL NEEDLE STICK
     Dates: start: 20060606, end: 20060615
  2. VIRACEPT [Suspect]
     Indication: ACCIDENTAL NEEDLE STICK
     Dates: start: 20060606, end: 20060615

REACTIONS (2)
  - JAUNDICE [None]
  - LIVER FUNCTION TEST ABNORMAL [None]
